FAERS Safety Report 10398158 (Version 1)
Quarter: 2014Q3

REPORT INFORMATION
  Report Type: Spontaneous
  Country: US (occurrence: None)
  Receive Date: 20140818
  Receipt Date: 20140818
  Transmission Date: 20150326
  Serious: Yes (Hospitalization)
  Sender: FDA-Public Use
  Company Number: None

PATIENT
  Age: 62 Year
  Sex: Female
  Weight: 89 kg

DRUGS (2)
  1. DAUNORUBICIN [Suspect]
     Active Substance: DAUNORUBICIN
     Dates: end: 20140803
  2. CYTARABINE. [Suspect]
     Active Substance: CYTARABINE
     Dates: end: 20140808

REACTIONS (8)
  - Dyspnoea [None]
  - Chills [None]
  - Haemodynamic instability [None]
  - Tachycardia [None]
  - Hypotension [None]
  - Febrile neutropenia [None]
  - Bacteraemia [None]
  - Chest pain [None]

NARRATIVE: CASE EVENT DATE: 20140811
